FAERS Safety Report 24956175 (Version 2)
Quarter: 2025Q3

REPORT INFORMATION
  Report Type: Spontaneous
  Country: EG (occurrence: EG)
  Receive Date: 20250211
  Receipt Date: 20250707
  Transmission Date: 20251021
  Serious: Yes (Hospitalization, Other)
  Sender: ELI LILLY AND COMPANY
  Company Number: EG-ELI_LILLY_AND_COMPANY-EG202502003352

PATIENT
  Age: 7 Year
  Sex: Male

DRUGS (3)
  1. HUMALOG [Suspect]
     Active Substance: INSULIN LISPRO
     Indication: Diabetes mellitus
     Dosage: 3 INTERNATIONAL UNIT, TID
     Route: 058
     Dates: start: 2021, end: 20250228
  2. HUMALOG [Suspect]
     Active Substance: INSULIN LISPRO
     Dosage: 3 INTERNATIONAL UNIT, TID
     Route: 058
     Dates: start: 20250305
  3. TRESIBA [Concomitant]
     Active Substance: INSULIN DEGLUDEC
     Indication: Diabetes mellitus

REACTIONS (9)
  - Diabetic ketoacidosis [Recovered/Resolved]
  - Acidosis [Recovered/Resolved]
  - Hyperglycaemia [Not Recovered/Not Resolved]
  - Hyperglycaemia [Not Recovered/Not Resolved]
  - Pain in extremity [Recovering/Resolving]
  - Back pain [Recovering/Resolving]
  - Toothache [Not Recovered/Not Resolved]
  - Abdominal pain [Recovering/Resolving]
  - Hypoglycaemia [Not Recovered/Not Resolved]

NARRATIVE: CASE EVENT DATE: 20240801
